FAERS Safety Report 5636509-2 (Version None)
Quarter: 2008Q1

REPORT INFORMATION
  Report Type: 
  Country: None (occurrence: None)
  Receive Date: 20080219
  Receipt Date: 20080219
  Transmission Date: 20080703
  Serious: Yes (Death, Life-Threatening, Hospitalization)
  Sender: FDA-Public Use
  Company Number: None

PATIENT
  Age: 69 Year
  Sex: Male
  Weight: 72.5755 kg

DRUGS (2)
  1. DUODERM UNKNOWN CONVATEC BRISTOL-MYERS [Suspect]
     Indication: PAIN
     Dosage: EVERY FOUR DAYS IM
     Route: 030
     Dates: start: 20060601, end: 20060704
  2. . [Concomitant]

REACTIONS (5)
  - AGGRESSION [None]
  - DISORIENTATION [None]
  - HALLUCINATION, VISUAL [None]
  - MEMORY IMPAIRMENT [None]
  - RESPIRATORY FAILURE [None]
